FAERS Safety Report 13212951 (Version 1)
Quarter: 2017Q1

REPORT INFORMATION
  Report Type: Spontaneous
  Country: US (occurrence: US)
  Receive Date: 20170209
  Receipt Date: 20170209
  Transmission Date: 20170428
  Serious: No
  Sender: FDA-Public Use
  Company Number: US-ALLERGAN-1672931US

PATIENT
  Sex: Female
  Weight: 49.89 kg

DRUGS (5)
  1. BOTOX COSMETIC [Suspect]
     Active Substance: ONABOTULINUMTOXINA
     Indication: SKIN WRINKLING
     Dosage: 17 UNITS, SINGLE
     Route: 030
     Dates: start: 20160620, end: 20160620
  2. BOTOX COSMETIC [Suspect]
     Active Substance: ONABOTULINUMTOXINA
     Dosage: 6 UNITS, SINGLE
     Route: 030
     Dates: start: 20160826, end: 20160826
  3. BOTOX COSMETIC [Suspect]
     Active Substance: ONABOTULINUMTOXINA
     Dosage: 17 UNITS, SINGLE
     Route: 030
     Dates: start: 20160826, end: 20160826
  4. JUVEDERM [Concomitant]
     Active Substance: HYALURONIC ACID
     Dosage: UNK UNK, SINGLE
     Dates: start: 20160826, end: 20160826
  5. BOTOX COSMETIC [Suspect]
     Active Substance: ONABOTULINUMTOXINA
     Indication: SKIN WRINKLING
     Dosage: 6 UNITS, SINGLE
     Route: 030
     Dates: start: 20160620, end: 20160620

REACTIONS (1)
  - Drug ineffective [Unknown]
